FAERS Safety Report 9487732 (Version 3)
Quarter: 2014Q4

REPORT INFORMATION
  Report Type: Spontaneous
  Country: US (occurrence: US)
  Receive Date: 20130725
  Receipt Date: 20141209
  Transmission Date: 20150529
  Serious: Yes (Hospitalization)
  Sender: FDA-Public Use
  Company Number: US-GLAXOSMITHKLINE-A0887137A

PATIENT

DRUGS (7)
  1. AVAPRO [Concomitant]
     Active Substance: IRBESARTAN
  2. LYRICA [Concomitant]
     Active Substance: PREGABALIN
  3. AVANDIA [Suspect]
     Active Substance: ROSIGLITAZONE MALEATE
     Indication: TYPE 2 DIABETES MELLITUS
     Route: 048
     Dates: start: 20010409, end: 200604
  4. AVANDAMET [Suspect]
     Active Substance: METFORMIN HYDROCHLORIDE\ROSIGLITAZONE MALEATE
     Indication: TYPE 2 DIABETES MELLITUS
     Route: 048
     Dates: start: 20031217, end: 20070606
  5. INSULIN [Concomitant]
     Active Substance: INSULIN NOS
  6. AVANDARYL [Suspect]
     Active Substance: GLIMEPIRIDE\ROSIGLITAZONE MALEATE
     Indication: DIABETES MELLITUS
     Route: 048
     Dates: start: 200704, end: 200706
  7. ALTACE [Concomitant]
     Active Substance: RAMIPRIL

REACTIONS (1)
  - Cardiac failure congestive [Not Recovered/Not Resolved]
